FAERS Safety Report 10379640 (Version 2)
Quarter: 2014Q3

REPORT INFORMATION
  Report Type: Report from Study
  Country: BR (occurrence: BR)
  Receive Date: 20140812
  Receipt Date: 20140909
  Transmission Date: 20150326
  Serious: Yes (Other)
  Sender: FDA-Public Use
  Company Number: PHHY2014BR099815

PATIENT
  Sex: Male
  Weight: 94 kg

DRUGS (5)
  1. LOSARTAN [Suspect]
     Active Substance: LOSARTAN
     Indication: HYPERTENSION
     Dosage: 2 DF, DAILY
     Route: 048
  2. DIOVAN HCT [Suspect]
     Active Substance: HYDROCHLOROTHIAZIDE\VALSARTAN
     Dosage: UNK UKN(320/UKN), UNK
  3. ABIRATERONE [Concomitant]
     Active Substance: ABIRATERONE
     Dosage: 4 DF(250MG), DAILY
     Route: 048
  4. DIOVAN [Suspect]
     Active Substance: VALSARTAN
     Indication: HYPERTENSION
     Dosage: 1 DF(320MG), BID (IN THE MORNING AND AT NIGHT)
     Route: 048
  5. METFORMIN [Concomitant]
     Active Substance: METFORMIN HYDROCHLORIDE
     Indication: DIABETES MELLITUS MANAGEMENT
     Dosage: 3 DF (850MG), DAILY
     Route: 048

REACTIONS (4)
  - Metastases to bone [Recovered/Resolved]
  - Cardiac disorder [Not Recovered/Not Resolved]
  - Prostate cancer [Recovered/Resolved]
  - Hypertension [Not Recovered/Not Resolved]
